FAERS Safety Report 7398323-X (Version None)
Quarter: 2011Q2

REPORT INFORMATION
  Report Type: 
  Country: None (occurrence: None)
  Receive Date: 20110406
  Receipt Date: 20110325
  Transmission Date: 20111010
  Serious: Yes (Other)
  Sender: FDA-Public Use
  Company Number: US-ELI_LILLY_AND_COMPANY-US201001001193

PATIENT
  Sex: Female
  Weight: 61.224 kg

DRUGS (1)
  1. FORTEO [Suspect]
     Indication: OSTEOPOROSIS
     Dosage: 20 UG, DAILY (1/D)
     Dates: start: 20091223

REACTIONS (3)
  - HYPOAESTHESIA [None]
  - PERIPHERAL COLDNESS [None]
  - LUNG NEOPLASM [None]
